FAERS Safety Report 10261302 (Version 1)
Quarter: 2014Q2

REPORT INFORMATION
  Report Type: Spontaneous
  Country: FR (occurrence: None)
  Receive Date: 20140623
  Receipt Date: 20140623
  Transmission Date: 20141212
  Serious: Yes (Other)
  Sender: FDA-Public Use
  Company Number: FR-014780

PATIENT
  Age: 42 Year
  Sex: Female

DRUGS (1)
  1. PICOPREP [Suspect]
     Indication: COLONOSCOPY
     Route: 048
     Dates: start: 20140120, end: 20140120

REACTIONS (2)
  - Enteritis [None]
  - Intestinal ulcer [None]
